FAERS Safety Report 7765890-3 (Version None)
Quarter: 2011Q3

REPORT INFORMATION
  Report Type: 
  Country: None (occurrence: None)
  Receive Date: 20110921
  Receipt Date: 20110914
  Transmission Date: 20111222
  Serious: Yes (Other)
  Sender: FDA-Public Use
  Company Number: US-CELGENEUS-163-AB007-11071145

PATIENT
  Weight: 106 kg

DRUGS (32)
  1. METFORMIN HCL [Concomitant]
     Route: 048
     Dates: start: 20110408
  2. MELOXICAM [Concomitant]
     Indication: ARTHRITIS
     Route: 048
  3. DIFLUCAN [Concomitant]
  4. SANDOSTATIN [Concomitant]
     Route: 041
     Dates: start: 20110516, end: 20110516
  5. COUMADIN [Concomitant]
     Route: 048
     Dates: start: 20110525
  6. ABRAXANE [Suspect]
     Dosage: 125 MILLIGRAM/SQ. METER
     Route: 041
     Dates: start: 20110223
  7. VITAMIN B-12 [Concomitant]
     Indication: VITAMIN B12 DEFICIENCY
     Route: 048
  8. BYSTOLIC [Concomitant]
     Indication: HYPERTENSION
     Route: 048
     Dates: start: 20100101
  9. CENESTIN [Concomitant]
     Indication: PROPHYLAXIS
     Route: 048
     Dates: start: 19740101
  10. VERAMYST [Concomitant]
     Indication: SEASONAL ALLERGY
     Route: 048
  11. LOVENOX [Concomitant]
     Route: 058
     Dates: start: 20110525, end: 20110531
  12. GEMCITABINE [Suspect]
     Dosage: 1000 MILLIGRAM/SQ. METER
     Route: 065
     Dates: start: 20110504
  13. CITALOPRAM HYDROBROMIDE [Concomitant]
     Indication: ANXIETY
     Route: 048
  14. SODIUM CHLORIDE [Concomitant]
     Indication: DEHYDRATION
     Route: 048
     Dates: start: 20110516, end: 20110516
  15. DEXAMETHASONE [Concomitant]
     Route: 041
     Dates: start: 20110608, end: 20110608
  16. LOMOTIL [Concomitant]
     Route: 048
     Dates: start: 20110516
  17. CREON [Concomitant]
     Route: 048
     Dates: start: 20110520, end: 20110601
  18. GEMCITABINE [Suspect]
     Dosage: 1000 MILLIGRAM/SQ. METER
     Route: 065
     Dates: start: 20110223
  19. DEXAMETHASONE [Concomitant]
     Indication: NAUSEA
     Route: 041
     Dates: start: 20110516, end: 20110516
  20. METHYLPREDNISOLONE ACETATE [Concomitant]
     Indication: FATIGUE
     Route: 048
     Dates: start: 20110601
  21. ABRAXANE [Suspect]
     Dosage: 125 MILLIGRAM/SQ. METER
     Route: 041
     Dates: start: 20110504
  22. FUROSEMIDE [Concomitant]
     Indication: PROPHYLAXIS
     Route: 048
  23. BENADRYL [Concomitant]
     Indication: PROPHYLAXIS
     Route: 048
     Dates: start: 20110406
  24. DIFLUCAN [Concomitant]
     Indication: RASH
     Route: 048
     Dates: start: 20110426, end: 20110502
  25. SODIUM CHLORIDE [Concomitant]
     Route: 048
     Dates: start: 20110608, end: 20110608
  26. MSM [Concomitant]
     Route: 048
     Dates: start: 20110511
  27. KYTRIL [Concomitant]
     Indication: NAUSEA
     Route: 041
     Dates: start: 20110516, end: 20110516
  28. ATIVAN [Concomitant]
     Indication: NAUSEA
     Route: 041
     Dates: start: 20110516, end: 20110516
  29. PREDNISONE [Concomitant]
     Indication: FATIGUE
     Route: 048
     Dates: start: 20110601
  30. ASPIRIN [Concomitant]
     Indication: PROPHYLAXIS
     Route: 048
  31. BYSTOLIC [Concomitant]
     Indication: TACHYCARDIA
  32. METOCLOPRAMIDE [Concomitant]
     Route: 048

REACTIONS (1)
  - UROSEPSIS [None]
